FAERS Safety Report 18952704 (Version 1)
Quarter: 2021Q1

REPORT INFORMATION
  Report Type: Spontaneous
  Country: JP (occurrence: JP)
  Receive Date: 20210301
  Receipt Date: 20210301
  Transmission Date: 20210420
  Serious: Yes (Other)
  Sender: FDA-Public Use
  Company Number: NVSJ2021JP002925

PATIENT
  Weight: 55 kg

DRUGS (1)
  1. NEORAL [Suspect]
     Active Substance: CYCLOSPORINE
     Indication: MYASTHENIA GRAVIS
     Dosage: 175MG, BID(175 MG(MORNING 100MG, EVENING 75MG))
     Route: 048

REACTIONS (3)
  - Immunosuppressant drug level decreased [Unknown]
  - Off label use [Unknown]
  - Burkitt^s lymphoma [Recovering/Resolving]
